FAERS Safety Report 9978316 (Version 2)
Quarter: 2014Q1

REPORT INFORMATION
  Report Type: Report from Study
  Country: US (occurrence: US)
  Receive Date: 20140306
  Receipt Date: 20140318
  Transmission Date: 20141002
  Serious: Yes (Death)
  Sender: FDA-Public Use
  Company Number: US-ABBVIE-14P-163-1209646-00

PATIENT
  Age: 52 Year
  Sex: Female

DRUGS (1)
  1. HUMIRA [Suspect]
     Indication: RHEUMATOID ARTHRITIS
     Route: 058
     Dates: start: 20130509, end: 20140207

REACTIONS (32)
  - Renal failure acute [Fatal]
  - Hypovolaemic shock [Fatal]
  - Pneumonia [Fatal]
  - Septic shock [Fatal]
  - Oliguria [Fatal]
  - Acute respiratory failure [Fatal]
  - Pneumonia aspiration [Fatal]
  - Mental status changes [Fatal]
  - Metabolic encephalopathy [Fatal]
  - Nausea [Fatal]
  - Vomiting [Fatal]
  - Diarrhoea [Fatal]
  - Escherichia infection [Fatal]
  - Escherichia urinary tract infection [Fatal]
  - Respiratory acidosis [Fatal]
  - Hypotension [Fatal]
  - Pulmonary congestion [Fatal]
  - Cardiac failure congestive [Fatal]
  - Dialysis [Fatal]
  - Mechanical ventilation [Fatal]
  - Tracheostomy [Fatal]
  - Fluid overload [Fatal]
  - Liver function test abnormal [Fatal]
  - Anaemia [Fatal]
  - Thrombocytopenia [Fatal]
  - Tracheobronchitis [Fatal]
  - Haemorrhagic anaemia [Fatal]
  - Electrolyte imbalance [Fatal]
  - Reflux gastritis [Fatal]
  - Gastrointestinal vascular malformation [Fatal]
  - Sepsis [Fatal]
  - Transaminases increased [Fatal]
